FAERS Safety Report 7238347-6 (Version None)
Quarter: 2011Q1

REPORT INFORMATION
  Report Type: 
  Country: None (occurrence: None)
  Receive Date: 20110121
  Receipt Date: 20110114
  Transmission Date: 20110831
  Serious: Yes (Death)
  Sender: FDA-Public Use
  Company Number: JP-SANOFI-AVENTIS-2011SA002421

PATIENT
  Sex: Male

DRUGS (2)
  1. ITRACONAZOLE [Suspect]
     Indication: PROSTATE CANCER
  2. TAXOTERE [Suspect]
     Indication: PROSTATE CANCER
     Route: 041

REACTIONS (1)
  - PNEUMONIA STAPHYLOCOCCAL [None]
